FAERS Safety Report 7373748-7 (Version None)
Quarter: 2011Q1

REPORT INFORMATION
  Report Type: 
  Country: None (occurrence: None)
  Receive Date: 20110315
  Receipt Date: 20110302
  Transmission Date: 20110831
  Serious: Yes (Other)
  Sender: FDA-Public Use
  Company Number: 2011SP010878

PATIENT
  Age: 26 Year
  Sex: Female

DRUGS (1)
  1. NASONEX [Suspect]
     Indication: RHINITIS
     Dosage: 2 DF;TID

REACTIONS (3)
  - URTICARIA [None]
  - LIP SWELLING [None]
  - SWELLING FACE [None]
